FAERS Safety Report 17454055 (Version 1)
Quarter: 2020Q1

REPORT INFORMATION
  Report Type: Spontaneous
  Country: RO (occurrence: RO)
  Receive Date: 20200224
  Receipt Date: 20200224
  Transmission Date: 20200409
  Serious: Yes (Other)
  Sender: FDA-Public Use
  Company Number: RO-BAXTER-2020BAX003522

PATIENT
  Sex: Female

DRUGS (4)
  1. AROMASIN [Suspect]
     Active Substance: EXEMESTANE
     Indication: BREAST CANCER
     Dosage: ADJUVANT THERAPY
     Route: 065
     Dates: start: 201702, end: 201908
  2. FLUOROURACIL. [Suspect]
     Active Substance: FLUOROURACIL
     Indication: BREAST CANCER STAGE II
     Dosage: 4 CURES, ONE CURE AT 21 DAYS
     Route: 065
     Dates: start: 201908
  3. DOCETAXEL. [Suspect]
     Active Substance: DOCETAXEL
     Indication: BREAST CANCER STAGE II
     Dosage: 4 CURES, ONE CURE AT 21 DAYS
     Route: 065
     Dates: start: 201908
  4. ENDOXAN 200 MG PULBERE PENTRU SOLUTIE PERFUZABILA/INJECTABILA [Suspect]
     Active Substance: CYCLOPHOSPHAMIDE
     Indication: BREAST CANCER STAGE II
     Dosage: 4 CURES, ONE CURE AT 21 DAYS
     Route: 065
     Dates: start: 201908

REACTIONS (1)
  - Metastases to liver [Unknown]
